FAERS Safety Report 4802980-9 (Version None)
Quarter: 2005Q4

REPORT INFORMATION
  Report Type: 
  Country: None (occurrence: None)
  Receive Date: 20051013
  Receipt Date: 20050927
  Transmission Date: 20060501
  Serious: Yes (Hospitalization)
  Sender: FDA-Public Use
  Company Number: FR_050907209

PATIENT
  Age: 72 Year
  Sex: Male
  Weight: 75 kg

DRUGS (5)
  1. ALIMTA [Suspect]
     Indication: NON-SMALL CELL LUNG CANCER
     Dosage: 500 MG/M2 OTHER
     Dates: start: 20050621, end: 20050721
  2. ALIMTA [Suspect]
     Indication: SQUAMOUS CELL CARCINOMA
     Dosage: 500 MG/M2 OTHER
     Dates: start: 20050621, end: 20050721
  3. SOLUPRED (PREDNISOLONE SODIUM SULFOBENZOATE) [Concomitant]
  4. SPECIALFOLDINE (FOLIC ACID) [Concomitant]
  5. VITAMIN B-12 [Concomitant]

REACTIONS (4)
  - ABDOMINAL PAIN LOWER [None]
  - GASTROINTESTINAL DISORDER [None]
  - PYREXIA [None]
  - SIGMOIDITIS [None]
